FAERS Safety Report 9018846 (Version 1)
Quarter: 2013Q1

REPORT INFORMATION
  Report Type: Spontaneous
  Country: US (occurrence: US)
  Receive Date: 20130118
  Receipt Date: 20130118
  Transmission Date: 20140127
  Serious: Yes (Hospitalization)
  Sender: FDA-Public Use
  Company Number: US-AMGEN-USASP2013002742

PATIENT
  Age: 43 Year
  Sex: Male
  Weight: 146.3 kg

DRUGS (3)
  1. ENBREL [Suspect]
     Indication: PRODUCT USED FOR UNKNOWN INDICATION
     Dosage: 50 MG, QWK
     Route: 058
  2. QUINAPRIL [Concomitant]
     Dosage: 10 MG, UNK
  3. NOVOLOG [Concomitant]
     Dosage: 100 ML, UNK

REACTIONS (1)
  - Coronary arterial stent insertion [Unknown]
